FAERS Safety Report 6391971-5 (Version None)
Quarter: 2009Q4

REPORT INFORMATION
  Report Type: 
  Country: None (occurrence: None)
  Receive Date: 20091007
  Receipt Date: 20090928
  Transmission Date: 20100525
  Serious: Yes (Hospitalization)
  Sender: FDA-Public Use
  Company Number: B0570700A

PATIENT
  Sex: Female

DRUGS (6)
  1. LAMICTAL [Suspect]
     Indication: EPILEPSY
     Route: 048
     Dates: start: 20090226, end: 20090408
  2. CLOBAZAM [Concomitant]
     Indication: EPILEPSY
     Route: 048
  3. DEPAKENE [Concomitant]
     Indication: EPILEPSY
     Dosage: 1600MG PER DAY
     Route: 048
  4. DEPAKENE [Concomitant]
     Dosage: 100MG PER DAY
     Route: 048
  5. TOPIRAMATE [Concomitant]
     Indication: EPILEPSY
     Dosage: 300MG PER DAY
     Route: 048
  6. RISPERDAL [Concomitant]
     Indication: HYPERKINESIA
     Dosage: .5MG PER DAY
     Route: 048

REACTIONS (18)
  - ALANINE AMINOTRANSFERASE INCREASED [None]
  - ASPARTATE AMINOTRANSFERASE INCREASED [None]
  - BLOOD ALKALINE PHOSPHATASE INCREASED [None]
  - BLOOD LACTATE DEHYDROGENASE INCREASED [None]
  - C-REACTIVE PROTEIN ABNORMAL [None]
  - DRUG ERUPTION [None]
  - DRUG RASH WITH EOSINOPHILIA AND SYSTEMIC SYMPTOMS [None]
  - EOSINOPHIL COUNT DECREASED [None]
  - ERYTHEMA [None]
  - GAMMA-GLUTAMYLTRANSFERASE INCREASED [None]
  - HUMAN HERPESVIRUS 6 INFECTION [None]
  - LYMPHADENOPATHY [None]
  - MALAISE [None]
  - PIGMENTATION DISORDER [None]
  - PYREXIA [None]
  - RASH [None]
  - TREMOR [None]
  - WHITE BLOOD CELL COUNT INCREASED [None]
